FAERS Safety Report 17766960 (Version 1)
Quarter: 2020Q2

REPORT INFORMATION
  Report Type: Spontaneous
  Country: MX (occurrence: MX)
  Receive Date: 20200511
  Receipt Date: 20200511
  Transmission Date: 20200714
  Serious: Yes (Other)
  Sender: FDA-Public Use
  Company Number: MX-AMNEAL PHARMACEUTICALS-2020-AMRX-01308

PATIENT
  Age: 21 Year

DRUGS (2)
  1. METHOTREXATE. [Suspect]
     Active Substance: METHOTREXATE
     Indication: ACUTE LYMPHOCYTIC LEUKAEMIA
     Dosage: FIVE ROUNDS
     Route: 037
  2. CYTARABINE. [Suspect]
     Active Substance: CYTARABINE
     Indication: ACUTE LYMPHOCYTIC LEUKAEMIA
     Dosage: FIVE ROUNDS
     Route: 037

REACTIONS (2)
  - Neuromyelitis optica spectrum disorder [Unknown]
  - Deafness neurosensory [Unknown]
